FAERS Safety Report 12954818 (Version 1)
Quarter: 2016Q4

REPORT INFORMATION
  Report Type: Spontaneous
  Country: US (occurrence: US)
  Receive Date: 20161118
  Receipt Date: 20161118
  Transmission Date: 20170207
  Serious: Yes (Hospitalization)
  Sender: FDA-Public Use
  Company Number: None

PATIENT
  Age: 67 Year
  Sex: Male

DRUGS (2)
  1. RADIUM RA-223 DICHLORIDE [Suspect]
     Active Substance: RADIUM RA-223 DICHLORIDE
     Indication: PROSTATE CANCER
     Dosage: RADIUM RA-223 DICHLORIDE - DOSE - VARIOUS - IV Q MONTH
     Route: 042
     Dates: start: 20160719
  2. ENZALUTAMIDE [Suspect]
     Active Substance: ENZALUTAMIDE
     Indication: PROSTATE CANCER
     Route: 048
     Dates: start: 20160719

REACTIONS (3)
  - Fall [None]
  - Device catching fire [None]
  - Head injury [None]

NARRATIVE: CASE EVENT DATE: 20161027
